FAERS Safety Report 5946559-4 (Version None)
Quarter: 2008Q4

REPORT INFORMATION
  Report Type: 
  Country: None (occurrence: None)
  Receive Date: 20081110
  Receipt Date: 20081106
  Transmission Date: 20090506
  Serious: Yes (Other)
  Sender: FDA-Public Use
  Company Number: D0059350A

PATIENT
  Age: 40 Year
  Sex: Male

DRUGS (2)
  1. KIVEXA [Suspect]
     Route: 048
     Dates: start: 20081105
  2. VIRAMUNE [Suspect]
     Route: 065

REACTIONS (3)
  - LOSS OF CONSCIOUSNESS [None]
  - NAUSEA [None]
  - PYREXIA [None]
